FAERS Safety Report 7977959-9 (Version None)
Quarter: 2011Q4

REPORT INFORMATION
  Report Type: 
  Country: None (occurrence: None)
  Receive Date: 20111214
  Receipt Date: 20111206
  Transmission Date: 20120403
  Serious: No
  Sender: FDA-Public Use
  Company Number: US-BIOGENIDEC-2011BI044482

PATIENT
  Age: 40 Year
  Sex: Female

DRUGS (2)
  1. TYSABRI [Suspect]
     Indication: MULTIPLE SCLEROSIS
     Route: 042
     Dates: start: 20110529, end: 20111130
  2. BACLOFEN [Concomitant]
     Indication: MUSCLE SPASTICITY
     Dates: start: 20030101

REACTIONS (14)
  - FOOT FRACTURE [None]
  - POOR VENOUS ACCESS [None]
  - MULTIPLE SCLEROSIS RELAPSE [None]
  - HYPOAESTHESIA [None]
  - SPEECH DISORDER [None]
  - DRUG INEFFECTIVE [None]
  - FUNGAL INFECTION [None]
  - OEDEMA PERIPHERAL [None]
  - GAIT DISTURBANCE [None]
  - MUSCLE SPASTICITY [None]
  - FALL [None]
  - URINARY TRACT INFECTION [None]
  - PAIN IN EXTREMITY [None]
  - FATIGUE [None]
